FAERS Safety Report 10457199 (Version 2)
Quarter: 2014Q4

REPORT INFORMATION
  Report Type: Spontaneous
  Country: US (occurrence: US)
  Receive Date: 20140916
  Receipt Date: 20141014
  Transmission Date: 20150528
  Serious: No
  Sender: FDA-Public Use
  Company Number: US-009507513-1409USA007045

PATIENT
  Age: 64 Year
  Sex: Male
  Weight: 97.51 kg

DRUGS (3)
  1. LOTRIMIN ULTRA [Suspect]
     Active Substance: BUTENAFINE HYDROCHLORIDE
     Indication: TINEA CRURIS
     Dosage: UNK UNK, QD
     Route: 061
     Dates: start: 201407
  2. TENORMIN [Concomitant]
     Active Substance: ATENOLOL
     Indication: CARDIAC MURMUR
     Dosage: UNK, UNKNOWN
  3. VITAMIN D [Concomitant]
     Active Substance: CHOLECALCIFEROL
     Indication: PRODUCT USED FOR UNKNOWN INDICATION
     Dosage: UNK, UNKNOWN

REACTIONS (1)
  - Drug ineffective [Unknown]

NARRATIVE: CASE EVENT DATE: 201407
